FAERS Safety Report 23252304 (Version 2)
Quarter: 2023Q4

REPORT INFORMATION
  Report Type: Spontaneous
  Country: CZ (occurrence: CZ)
  Receive Date: 20231201
  Receipt Date: 20231207
  Transmission Date: 20240110
  Serious: Yes (Death, Hospitalization, Other)
  Sender: FDA-Public Use
  Company Number: CZ-GILEAD-2023-0652952

PATIENT
  Sex: Female

DRUGS (1)
  1. YESCARTA [Suspect]
     Active Substance: AXICABTAGENE CILOLEUCEL
     Indication: High-grade B-cell lymphoma
     Route: 065

REACTIONS (17)
  - Acute myeloid leukaemia [Fatal]
  - Bacteraemia [Unknown]
  - Systemic candida [Unknown]
  - Candida infection [Unknown]
  - Pancytopenia [Unknown]
  - Agranulocytosis [Unknown]
  - White blood cell count increased [Unknown]
  - Serum ferritin increased [Unknown]
  - Hypertriglyceridaemia [Unknown]
  - Septic shock [Unknown]
  - Blood fibrinogen decreased [Unknown]
  - Thrombocytopenia [Unknown]
  - Haemophagocytic lymphohistiocytosis [Unknown]
  - Hepatic enzyme increased [Unknown]
  - Anaemia [Unknown]
  - Immune effector cell-associated neurotoxicity syndrome [Recovered/Resolved]
  - Cytokine release syndrome [Unknown]
